FAERS Safety Report 19054161 (Version 2)
Quarter: 2021Q2

REPORT INFORMATION
  Report Type: Spontaneous
  Country: BE (occurrence: BE)
  Receive Date: 20210324
  Receipt Date: 20210412
  Transmission Date: 20210717
  Serious: Yes (Other)
  Sender: FDA-Public Use
  Company Number: BE-SA-2021SA098376

PATIENT
  Age: 29 Year
  Sex: Female

DRUGS (4)
  1. DUPIXENT [Suspect]
     Active Substance: DUPILUMAB
     Indication: DERMATITIS ATOPIC
     Dosage: 600 MG, 1X
     Dates: start: 20201204, end: 20201204
  2. SPORANOX [Concomitant]
     Active Substance: ITRACONAZOLE
     Indication: FUNGAL INFECTION
  3. DUPIXENT [Suspect]
     Active Substance: DUPILUMAB
     Dosage: 300 MG
  4. DUPIXENT [Suspect]
     Active Substance: DUPILUMAB
     Dosage: 2 DF, 1X
     Dates: start: 202103

REACTIONS (12)
  - Herpes ophthalmic [Unknown]
  - Alopecia [Unknown]
  - Abdominal pain [Unknown]
  - Intentional dose omission [Unknown]
  - Diarrhoea [Unknown]
  - Fungal infection [Unknown]
  - Fatigue [Unknown]
  - Erythema [Unknown]
  - Madarosis [Unknown]
  - Dermatitis atopic [Unknown]
  - Headache [Unknown]
  - Eczema [Unknown]

NARRATIVE: CASE EVENT DATE: 20201204
